FAERS Safety Report 5406983-5 (Version None)
Quarter: 2007Q3

REPORT INFORMATION
  Report Type: 
  Country: None (occurrence: None)
  Receive Date: 20070803
  Receipt Date: 20070803
  Transmission Date: 20080115
  Serious: Yes (Hospitalization)
  Sender: FDA-Public Use
  Company Number: None

PATIENT
  Sex: Male
  Weight: 52.7 kg

DRUGS (5)
  1. BEVACIZUMAB [Suspect]
     Indication: BREAST CANCER
     Dosage: 10 MG/KG Q3WEEKS IV
     Route: 042
     Dates: start: 20070713
  2. DOCETAXEL [Suspect]
     Indication: BREAST CANCER
     Dosage: 30MG/M2 D1/D8QC IV
     Route: 042
     Dates: start: 20070713
  3. DOCETAXEL [Suspect]
     Indication: BREAST CANCER
     Dosage: 30MG/M2 D1/D8QC IV
     Route: 042
     Dates: start: 20070720
  4. CISPLATIN [Suspect]
     Indication: BREAST CANCER
     Dosage: 25MG/M2 D1/D8QC IV
     Route: 042
     Dates: start: 20070713
  5. IRINOTECAN HCL [Suspect]
     Indication: BREAST CANCER
     Dosage: 50MG/M2 IV
     Route: 042
     Dates: start: 20070720

REACTIONS (5)
  - DEHYDRATION [None]
  - DIARRHOEA [None]
  - FEBRILE NEUTROPENIA [None]
  - RENAL IMPAIRMENT [None]
  - VOMITING [None]
